FAERS Safety Report 10506839 (Version 1)
Quarter: 2014Q4

REPORT INFORMATION
  Report Type: Spontaneous
  Country: US (occurrence: None)
  Receive Date: 20141007
  Receipt Date: 20141007
  Transmission Date: 20150528
  Serious: Yes (Death, Hospitalization)
  Sender: FDA-Public Use
  Company Number: HYP201409-000069

PATIENT
  Age: 45 Year
  Sex: Male
  Weight: 96 kg

DRUGS (1)
  1. RAVICTI [Suspect]
     Active Substance: GLYCEROL PHENYLBUTYRATE
     Indication: UREA CYCLE ENZYME DEFICIENCY
     Dates: start: 201305, end: 20140920

REACTIONS (20)
  - Tremor [None]
  - Stridor [None]
  - Dysuria [None]
  - Nausea [None]
  - Mental status changes [None]
  - Pancreatitis [None]
  - Metabolic acidosis [None]
  - Liver function test abnormal [None]
  - Cough [None]
  - Lethargy [None]
  - Arginase deficiency [None]
  - Vomiting [None]
  - Sinus tachycardia [None]
  - Pyrexia [None]
  - Dialysis [None]
  - Pneumonia aspiration [None]
  - Hyperammonaemic crisis [None]
  - Hypertension [None]
  - Diarrhoea [None]
  - Irritability [None]

NARRATIVE: CASE EVENT DATE: 20140902
